FAERS Safety Report 22167890 (Version 1)
Quarter: 2023Q2

REPORT INFORMATION
  Report Type: Spontaneous
  Country: NZ (occurrence: None)
  Receive Date: 20230403
  Receipt Date: 20230403
  Transmission Date: 20230721
  Serious: Yes (Hospitalization)
  Sender: FDA-Public Use
  Company Number: 2023A077218

PATIENT
  Age: 71 Year
  Sex: Male

DRUGS (20)
  1. OMEPRAZOLE [Suspect]
     Active Substance: OMEPRAZOLE
     Route: 048
     Dates: start: 20020516, end: 20020517
  2. ERLOTINIB [Suspect]
     Active Substance: ERLOTINIB
     Indication: Non-small cell lung cancer
     Dosage: 100 MILLIGRAM
     Dates: start: 20020321, end: 20020523
  3. CISPLATIN [Concomitant]
     Active Substance: CISPLATIN
     Indication: Non-small cell lung cancer
  4. METOCLOPRAMIDE [Concomitant]
     Active Substance: METOCLOPRAMIDE
     Dates: start: 20020328
  5. ZOPICLONE [Concomitant]
     Active Substance: ZOPICLONE
     Dates: start: 20020115
  6. TENOXICAM [Concomitant]
     Active Substance: TENOXICAM
  7. MORPHINE SULFATE [Concomitant]
     Active Substance: MORPHINE SULFATE
     Indication: Cholecystitis
     Dates: start: 20020507, end: 20020517
  8. LOPERAMIDE [Concomitant]
     Active Substance: LOPERAMIDE
     Indication: Diarrhoea
     Dosage: 2 MG
     Dates: start: 20020530
  9. LOPERAMIDE [Concomitant]
     Active Substance: LOPERAMIDE
     Indication: Vomiting
     Dosage: 2 MG
     Dates: start: 20020530
  10. RANITIDINE [Concomitant]
     Active Substance: RANITIDINE
  11. CEFACLOR [Concomitant]
     Active Substance: CEFACLOR
  12. DOCUSATE SODIUM [Concomitant]
     Active Substance: DOCUSATE SODIUM
  13. DIAZEPAM [Concomitant]
     Active Substance: DIAZEPAM
     Dates: start: 20020517, end: 20020517
  14. ZANTAC [Concomitant]
     Active Substance: RANITIDINE HYDROCHLORIDE
     Indication: Diarrhoea
     Dates: start: 20020418
  15. ZANTAC [Concomitant]
     Active Substance: RANITIDINE HYDROCHLORIDE
     Indication: Vomiting
     Dates: start: 20020418
  16. METRONIDAZOLE [Concomitant]
     Active Substance: METRONIDAZOLE
     Indication: Cholecystitis
     Dates: start: 20020423, end: 20020426
  17. CECLOR [Concomitant]
     Active Substance: CEFACLOR
     Dosage: 1500 MG
     Dates: start: 20020426
  18. MORPHINE SULFATE [Concomitant]
     Active Substance: MORPHINE SULFATE
     Dates: start: 20020315
  19. MORPHINE [Concomitant]
     Active Substance: MORPHINE
     Dates: start: 20020315
  20. COLOXYL [Concomitant]
     Dates: start: 20020315

REACTIONS (3)
  - Vomiting [Unknown]
  - Dehydration [Unknown]
  - Delirium [Recovered/Resolved]

NARRATIVE: CASE EVENT DATE: 20020517
